FAERS Safety Report 19702281 (Version 1)
Quarter: 2021Q3

REPORT INFORMATION
  Report Type: Spontaneous
  Country: DE (occurrence: DE)
  Receive Date: 20210814
  Receipt Date: 20210814
  Transmission Date: 20211014
  Serious: Yes (Life-Threatening, Hospitalization, Other)
  Sender: FDA-Public Use
  Company Number: DE-TEVA-2021-DE-1940763

PATIENT
  Age: 56 Year
  Sex: Male
  Weight: 150 kg

DRUGS (16)
  1. DOXAZOSINDOXAZOSIN [Concomitant]
     Dosage: 8 MILLIGRAM DAILY; 1?0?1?0
     Route: 048
  2. NATRIUMHYDROGENCARBONAT [Concomitant]
     Active Substance: SODIUM BICARBONATE
     Dosage: 4000 MILLIGRAM DAILY; 1000 MG, 2?0?2?0, SUSTAINED?RELEASE TABLETS
     Route: 048
  3. ALFACALCIDOL [Concomitant]
     Active Substance: ALFACALCIDOL
     Dosage: 1 MICROGRAM DAILY; 0?0?1?0
     Route: 048
  4. TORASEMID [Concomitant]
     Active Substance: TORSEMIDE
     Dosage: 40 MILLIGRAM DAILY; 10 MG, 4?0?0?0
     Route: 048
  5. AMLODIPIN [Concomitant]
     Active Substance: AMLODIPINE BESYLATE
     Dosage: 10 MILLIGRAM DAILY; 1?0?1?0
     Route: 048
  6. PREDNISOLON [Interacting]
     Active Substance: PREDNISOLONE
     Dosage: 5 MILLIGRAM DAILY; 1?0?0?0
     Route: 048
  7. CICLOSPORIN [Interacting]
     Active Substance: CYCLOSPORINE
     Dosage: 200 MILLIGRAM DAILY; 1?0?1?0
     Route: 048
  8. ROSUVASTATIN. [Interacting]
     Active Substance: ROSUVASTATIN
     Dosage: 10 MILLIGRAM DAILY; 0?0?1?0:MEDICATION ERRORS
     Route: 048
  9. MYCOPHENOLSAURE [Suspect]
     Active Substance: MYCOPHENOLIC ACID
     Dosage: 1440 MILLIGRAM DAILY; 360 MG, 2?0?2?0, SUSTAINED?RELEASE TABLETS
     Route: 048
  10. POLYSTYROLSULFONAT [Concomitant]
     Dosage: 1 DOSAGE FORMS DAILY; 14.9 G, 0?1?0?0
     Route: 048
  11. METOPROLOL. [Concomitant]
     Active Substance: METOPROLOL
     Dosage: 190 MILLIGRAM DAILY; 1?0?1?0, SUSTAINED?RELEASE TABLETS
     Route: 048
  12. CICLOSPORIN [Suspect]
     Active Substance: CYCLOSPORINE
     Dosage: 50 MILLIGRAM DAILY; 0?0?1?0
     Route: 048
  13. CICLOSPORIN [Interacting]
     Active Substance: CYCLOSPORINE
     Dosage: 20 MILLIGRAM DAILY; 1?0?1?0
     Route: 048
  14. ALLOPURINOL. [Concomitant]
     Active Substance: ALLOPURINOL
     Dosage: 300 MILLIGRAM DAILY; 0?0?1?0
     Route: 048
  15. CANDESARTAN. [Concomitant]
     Active Substance: CANDESARTAN
     Dosage: 32 MILLIGRAM DAILY; 1?0?1?0
     Route: 048
  16. COLECALCIFEROL (VITAMIN D) [Concomitant]
     Active Substance: CHOLECALCIFEROL
     Dosage: 20,000 IU, ACCORDING TO THE SCHEME, CAPSULES
     Route: 048

REACTIONS (5)
  - Dyspnoea [Unknown]
  - Labelled drug-drug interaction medication error [Unknown]
  - Cough [Unknown]
  - Headache [Unknown]
  - Haemoptysis [Unknown]
